FAERS Safety Report 9563870 (Version 1)
Quarter: 2013Q3

REPORT INFORMATION
  Report Type: Spontaneous
  Country: US (occurrence: None)
  Receive Date: 20130926
  Receipt Date: 20130926
  Transmission Date: 20140515
  Serious: Yes (Disabling)
  Sender: FDA-Public Use
  Company Number: None

PATIENT
  Age: 43 Year
  Sex: Female
  Weight: 61.24 kg

DRUGS (1)
  1. CIPRO 500MG WALGREENS [Suspect]
     Indication: DIVERTICULITIS
     Dosage: 1
     Route: 048

REACTIONS (2)
  - Arthropathy [None]
  - Malaise [None]
